FAERS Safety Report 6253635-8 (Version None)
Quarter: 2009Q3

REPORT INFORMATION
  Report Type: 
  Country: None (occurrence: None)
  Receive Date: 20090701
  Receipt Date: 20090618
  Transmission Date: 20100115
  Serious: Yes (Other)
  Sender: FDA-Public Use
  Company Number: US-PFIZER INC-2009229514

PATIENT
  Sex: Female
  Weight: 59 kg

DRUGS (10)
  1. PROVERA [Suspect]
     Indication: HORMONE REPLACEMENT THERAPY
     Dosage: 5 MG, UNK
     Route: 048
     Dates: start: 19920101, end: 19930101
  2. MEDROXYPROGESTERONE ACETATE [Suspect]
     Indication: HORMONE REPLACEMENT THERAPY
     Dosage: 5 MG, UNK
     Dates: start: 19970101, end: 20010101
  3. PREMARIN [Suspect]
     Indication: HORMONE REPLACEMENT THERAPY
     Dosage: 1.25 MG, UNK
     Dates: start: 19920101, end: 20010101
  4. PREMARIN [Suspect]
     Dosage: 2 MG, UNK
     Dates: start: 20021201
  5. ACTIVELLE [Suspect]
     Indication: HORMONE REPLACEMENT THERAPY
     Dosage: 1MG/0.5MG
     Dates: start: 20010101
  6. PREMPRO [Suspect]
     Indication: HORMONE REPLACEMENT THERAPY
  7. ESTRACE [Suspect]
     Indication: HORMONE REPLACEMENT THERAPY
     Dosage: 2 MG, UNK
     Dates: start: 19930101, end: 19960101
  8. ESTRACE [Suspect]
     Dosage: 1 MG, UNK
     Dates: start: 19930101, end: 19960101
  9. CLIMARA [Suspect]
     Indication: HORMONE REPLACEMENT THERAPY
     Dosage: 0.1 MG, UNK
     Dates: start: 19961001
  10. ESTROGENS [Suspect]
     Indication: HORMONE REPLACEMENT THERAPY

REACTIONS (1)
  - BREAST CANCER [None]
